FAERS Safety Report 18180537 (Version 1)
Quarter: 2020Q3

REPORT INFORMATION
  Report Type: Report from Study
  Country: GB (occurrence: GB)
  Receive Date: 20200821
  Receipt Date: 20200821
  Transmission Date: 20201103
  Serious: Yes (Other)
  Sender: FDA-Public Use
  Company Number: GB-GLAXOSMITHKLINE-GB2020EME163519

PATIENT
  Sex: Female

DRUGS (1)
  1. MEPOLIZUMAB [Suspect]
     Active Substance: MEPOLIZUMAB
     Indication: ASTHMA
     Dosage: 100 MG, Z, EVERY 4 WEEK

REACTIONS (6)
  - Cyanosis [Unknown]
  - Autoimmune disorder [Unknown]
  - Gastrooesophageal reflux disease [Unknown]
  - Product dose omission issue [Unknown]
  - Systemic lupus erythematosus [Unknown]
  - Cardioversion [Unknown]
